FAERS Safety Report 6792478-3 (Version None)
Quarter: 2010Q2

REPORT INFORMATION
  Report Type: 
  Country: None (occurrence: None)
  Receive Date: 20100624
  Receipt Date: 20100617
  Transmission Date: 20101027
  Serious: Yes (Other)
  Sender: FDA-Public Use
  Company Number: US-AMGEN-QUU416961

PATIENT
  Sex: Female

DRUGS (2)
  1. ENBREL [Suspect]
     Indication: PSORIATIC ARTHROPATHY
     Route: 058
     Dates: start: 20100409
  2. ENBREL [Suspect]
     Indication: PSORIASIS

REACTIONS (8)
  - ANXIETY [None]
  - ARTHRALGIA [None]
  - BONE PAIN [None]
  - DEPRESSION [None]
  - HEADACHE [None]
  - HOT FLUSH [None]
  - INJECTION SITE HAEMATOMA [None]
  - NECK PAIN [None]
